FAERS Safety Report 8773747 (Version 3)
Quarter: 2012Q4

REPORT INFORMATION
  Report Type: 
  Country: US (occurrence: US)
  Receive Date: 20120907
  Receipt Date: 20121008
  Transmission Date: 20130627
  Serious: Yes (Other)
  Sender: FDA-Public Use
  Company Number: US-BAYER-2012-082283

PATIENT
  Age: 78 Year
  Sex: Male

DRUGS (3)
  1. NEXAVAR [Suspect]
     Indication: RENAL CELL CARCINOMA
     Dosage: 400 mg, BID
     Route: 048
     Dates: start: 20120726, end: 20120815
  2. NEXAVAR [Suspect]
     Indication: RENAL CELL CARCINOMA
     Dosage: 400 mg, BID
     Route: 048
     Dates: start: 20120829
  3. NEXAVAR [Suspect]
     Indication: RENAL CELL CARCINOMA
     Dosage: 400 mg, BID
     Route: 048
     Dates: end: 20120917

REACTIONS (9)
  - Muscular weakness [Recovering/Resolving]
  - Abasia [Recovering/Resolving]
  - Metastasis [Not Recovered/Not Resolved]
  - Cancer pain [Recovering/Resolving]
  - Constipation [Recovering/Resolving]
  - Decreased appetite [Recovering/Resolving]
  - Asthenia [Recovering/Resolving]
  - Weight decreased [Not Recovered/Not Resolved]
  - Dehydration [Recovering/Resolving]
